FAERS Safety Report 9103877 (Version 3)
Quarter: 2013Q1

REPORT INFORMATION
  Report Type: Spontaneous
  Country: CA (occurrence: CA)
  Receive Date: 20130219
  Receipt Date: 20130305
  Transmission Date: 20140127
  Serious: Yes (Death, Hospitalization)
  Sender: FDA-Public Use
  Company Number: CA-JNJFOC-20130208137

PATIENT
  Age: 2 Year
  Sex: Male

DRUGS (2)
  1. CHILDREN^S TYLENOL CHEWABLES [Suspect]
     Indication: PYREXIA
     Route: 048
     Dates: start: 20040923, end: 20040923
  2. AN UNKNOWN MEDICATION [Concomitant]
     Indication: PNEUMONIA
     Route: 065

REACTIONS (2)
  - Choking [Fatal]
  - Respiratory arrest [Fatal]
